FAERS Safety Report 13266927 (Version 1)
Quarter: 2017Q1

REPORT INFORMATION
  Report Type: Spontaneous
  Country: CA (occurrence: CA)
  Receive Date: 20170224
  Receipt Date: 20170224
  Transmission Date: 20170428
  Serious: Yes (Other)
  Sender: FDA-Public Use
  Company Number: CA-ORION CORPORATION ORION PHARMA-TREX2017-0606

PATIENT
  Age: 47 Year
  Sex: Female

DRUGS (2)
  1. TRIMEBUTINE [Concomitant]
     Active Substance: TRIMEBUTINE
     Indication: IRRITABLE BOWEL SYNDROME
     Route: 065
  2. METHOTREXATE (TRADE NAME UNKNOWN) [Suspect]
     Active Substance: METHOTREXATE
     Route: 065
     Dates: start: 20151030

REACTIONS (1)
  - Psoriatic arthropathy [Recovered/Resolved with Sequelae]

NARRATIVE: CASE EVENT DATE: 20160613
